FAERS Safety Report 4674479-4 (Version None)
Quarter: 2005Q2

REPORT INFORMATION
  Report Type: 
  Country: None (occurrence: None)
  Receive Date: 20050526
  Receipt Date: 20050519
  Transmission Date: 20051028
  Serious: Yes (Other)
  Sender: FDA-Public Use
  Company Number: BR-JNJFOC-20050506140

PATIENT
  Age: 25 Year
  Sex: Female
  Weight: 50 kg

DRUGS (1)
  1. ORTHO EVRA [Suspect]
     Indication: CONTRACEPTION
     Route: 062

REACTIONS (3)
  - HEADACHE [None]
  - HYPOTENSION [None]
  - SYNCOPE [None]
